FAERS Safety Report 5042948-3 (Version None)
Quarter: 2006Q2

REPORT INFORMATION
  Report Type: 
  Country: None (occurrence: None)
  Receive Date: 20060627
  Receipt Date: 20060614
  Transmission Date: 20061013
  Serious: Yes (Hospitalization)
  Sender: FDA-Public Use
  Company Number: 2006069685

PATIENT
  Age: 71 Year
  Sex: Female
  Weight: 54.5 kg

DRUGS (14)
  1. SU-001,248 (SUNITINIB MALATE) SUTENT [Suspect]
     Indication: METASTATIC RENAL CELL CARCINOMA
  2. CATAPRES [Concomitant]
  3. AVEENO CREAM (ALLANTOIN, AVENA, GLYCEROL) [Concomitant]
  4. COLACE (DOCUSATE SODIUM) [Concomitant]
  5. LACTULOSE [Concomitant]
  6. LOPRESSOR [Concomitant]
  7. SENOKOT [Concomitant]
  8. ALDACTONE [Concomitant]
  9. CARDURA [Concomitant]
  10. SYNTHROID [Concomitant]
  11. ATIVAN [Concomitant]
  12. PANTOPRAZOLE SODIUM [Concomitant]
  13. ALUMINUM HYDROXIDE AND MAGNESIUM TRISILICATE [Concomitant]
  14. APRESOLINE [Concomitant]

REACTIONS (6)
  - DRUG TOXICITY [None]
  - DYSPNOEA [None]
  - IATROGENIC INJURY [None]
  - NEPHROTIC SYNDROME [None]
  - PLEURAL EFFUSION [None]
  - THROMBOTIC MICROANGIOPATHY [None]
